FAERS Safety Report 16006192 (Version 1)
Quarter: 2019Q1

REPORT INFORMATION
  Report Type: Spontaneous
  Country: IN (occurrence: IN)
  Receive Date: 20190226
  Receipt Date: 20190226
  Transmission Date: 20190418
  Serious: Yes (Hospitalization, Other)
  Sender: FDA-Public Use
  Company Number: IN-VIRTUS PHARMACEUTICALS, LLC-2019VTS00006

PATIENT
  Age: 52 Year
  Sex: Female

DRUGS (2)
  1. DAPSONE. [Suspect]
     Active Substance: DAPSONE
     Indication: DERMATITIS
     Dosage: UNK UNK, 1X/DAY
     Route: 061
  2. DAPSONE. [Suspect]
     Active Substance: DAPSONE
     Dosage: 100 UNK, 1X/DAY
     Route: 048

REACTIONS (2)
  - Drug reaction with eosinophilia and systemic symptoms [Recovered/Resolved]
  - Sepsis [Recovered/Resolved]
